FAERS Safety Report 17089867 (Version 2)
Quarter: 2019Q4

REPORT INFORMATION
  Report Type: Report from Study
  Country: None (occurrence: CA)
  Receive Date: 20191128
  Receipt Date: 20191213
  Transmission Date: 20200122
  Serious: Yes (Other)
  Sender: FDA-Public Use
  Company Number: CA-ABBVIE-19K-028-3172443-00

PATIENT
  Age: 53 Year
  Sex: Male

DRUGS (2)
  1. HUMIRA [Suspect]
     Active Substance: ADALIMUMAB
     Route: 058
     Dates: start: 201908
  2. HUMIRA [Suspect]
     Active Substance: ADALIMUMAB
     Indication: CROHN^S DISEASE
     Route: 058
     Dates: start: 20170228, end: 2019

REACTIONS (10)
  - Abdominal discomfort [Recovered/Resolved]
  - Abnormal faeces [Not Recovered/Not Resolved]
  - Defaecation urgency [Unknown]
  - Diarrhoea [Not Recovered/Not Resolved]
  - Weight decreased [Not Recovered/Not Resolved]
  - Small intestinal stenosis [Unknown]
  - Vomiting [Recovered/Resolved]
  - Faecal calprotectin increased [Not Recovered/Not Resolved]
  - Obstruction [Not Recovered/Not Resolved]
  - Drug ineffective [Not Recovered/Not Resolved]

NARRATIVE: CASE EVENT DATE: 2019
